FAERS Safety Report 25329958 (Version 1)
Quarter: 2025Q2

REPORT INFORMATION
  Report Type: Other
  Country: TR (occurrence: TR)
  Receive Date: 20250519
  Receipt Date: 20250519
  Transmission Date: 20250716
  Serious: Yes (Hospitalization)
  Sender: ANI
  Company Number: TR-ANIPHARMA-022827

PATIENT
  Age: 6 Year
  Sex: Female
  Weight: 25 kg

DRUGS (10)
  1. CLARITHROMYCIN [Suspect]
     Active Substance: CLARITHROMYCIN
     Indication: Antibiotic therapy
  2. ENALAPRIL [Concomitant]
     Active Substance: ENALAPRIL
     Indication: Focal segmental glomerulosclerosis
  3. CEFTRIAXONE [Concomitant]
     Active Substance: CEFTRIAXONE
     Indication: Antibiotic therapy
  4. METHYLPREDNISOLONE [Concomitant]
     Active Substance: METHYLPREDNISOLONE
     Indication: Pulmonary haemosiderosis
  5. HYDROXYCHLOROQUINE [Concomitant]
     Active Substance: HYDROXYCHLOROQUINE
     Indication: Pulmonary haemosiderosis
  6. AZATHIOPRINE [Concomitant]
     Active Substance: AZATHIOPRINE
     Indication: Pulmonary haemosiderosis
  7. METHYLPREDNISOLONE [Concomitant]
     Active Substance: METHYLPREDNISOLONE
     Indication: Pulmonary haemosiderosis
  8. HYDROXYCHLOROQUINE [Concomitant]
     Active Substance: HYDROXYCHLOROQUINE
     Indication: Pulmonary haemosiderosis
  9. METHYLPREDNISOLONE [Concomitant]
     Active Substance: METHYLPREDNISOLONE
     Indication: Pulmonary haemosiderosis
  10. HYDROXYCHLOROQUINE [Concomitant]
     Active Substance: HYDROXYCHLOROQUINE
     Indication: Pulmonary haemosiderosis

REACTIONS (2)
  - Drug interaction [Unknown]
  - Neuropsychological symptoms [Recovered/Resolved]
